FAERS Safety Report 13382577 (Version 1)
Quarter: 2017Q1

REPORT INFORMATION
  Report Type: Report from Study
  Country: US (occurrence: US)
  Receive Date: 20170329
  Receipt Date: 20170329
  Transmission Date: 20170429
  Serious: Yes (Other)
  Sender: FDA-Public Use
  Company Number: PHHY2017US043850

PATIENT
  Age: 43 Year
  Sex: Female

DRUGS (3)
  1. OXYBUTYNIN CHLORIDE. [Concomitant]
     Active Substance: OXYBUTYNIN CHLORIDE
     Indication: BLADDER SPASM
  2. GILENYA [Suspect]
     Active Substance: FINGOLIMOD HYDROCHLORIDE
     Indication: MULTIPLE SCLEROSIS
     Dosage: UNK, QD
     Route: 048
  3. OXYBUTYNIN CHLORIDE. [Concomitant]
     Active Substance: OXYBUTYNIN CHLORIDE
     Indication: HYPERTONIC BLADDER
     Dosage: UNK
     Route: 065
     Dates: start: 20160708

REACTIONS (8)
  - Oedema peripheral [Unknown]
  - Partial seizures [Unknown]
  - Diarrhoea [Unknown]
  - Dizziness [Unknown]
  - Weight increased [Unknown]
  - Alanine aminotransferase increased [Unknown]
  - Back pain [Unknown]
  - Palpitations [Unknown]

NARRATIVE: CASE EVENT DATE: 20160628
